FAERS Safety Report 5351513-X (Version None)
Quarter: 2007Q2

REPORT INFORMATION
  Report Type: 
  Country: None (occurrence: None)
  Receive Date: 20070521
  Receipt Date: 20070405
  Transmission Date: 20071010
  Serious: No
  Sender: FDA-Public Use
  Company Number: WAES 0704USA00914

PATIENT
  Age: 67 Year
  Sex: Female

DRUGS (11)
  1. JANUVIA [Suspect]
     Indication: DIABETES MELLITUS NON-INSULIN-DEPENDENT
     Dosage: 100 MG/DAILY/PO
     Route: 048
     Dates: start: 20070321
  2. ACTOS [Concomitant]
  3. CALTRATE [Concomitant]
  4. DIOVAN [Concomitant]
  5. FOSAMAX [Concomitant]
  6. LANTUS [Concomitant]
  7. LIPITOR [Concomitant]
  8. SYNTHROID [Concomitant]
  9. ASPIRIN [Concomitant]
  10. MAGNESIUM SULFATE [Concomitant]
  11. METFORMIN HCL [Concomitant]

REACTIONS (2)
  - BLOOD GLUCOSE ABNORMAL [None]
  - BLOOD GLUCOSE FLUCTUATION [None]
